FAERS Safety Report 19381987 (Version 1)
Quarter: 2021Q2

REPORT INFORMATION
  Report Type: Spontaneous
  Country: US (occurrence: US)
  Receive Date: 20210607
  Receipt Date: 20210607
  Transmission Date: 20210717
  Serious: No
  Sender: FDA-Public Use
  Company Number: US-BAYER-2021-151926

PATIENT
  Age: 62 Year
  Sex: Female

DRUGS (2)
  1. IGG [Concomitant]
     Active Substance: HUMAN IMMUNOGLOBULIN G
     Dosage: UNK UNK, Q4WK
     Dates: start: 2006
  2. MIRALAX [Suspect]
     Active Substance: POLYETHYLENE GLYCOL 3350
     Dosage: TWICE
     Dates: start: 2012

REACTIONS (2)
  - Vomiting [Unknown]
  - Drug hypersensitivity [Unknown]
